FAERS Safety Report 6243800-8 (Version None)
Quarter: 2009Q2

REPORT INFORMATION
  Report Type: 
  Country: None (occurrence: None)
  Receive Date: 20090624
  Receipt Date: 20090618
  Transmission Date: 20091009
  Serious: Yes (Death, Hospitalization, Other)
  Sender: FDA-Public Use
  Company Number: PHHY2009BR24522

PATIENT
  Sex: Female

DRUGS (2)
  1. DIOVAN HCT [Suspect]
     Indication: HYPERTENSION
     Dosage: ONE TABLET IN THE MORNING
     Route: 048
     Dates: start: 20090601
  2. LANITOP [Concomitant]
     Indication: CARDIAC DISORDER
     Dosage: 1 TABLET DAILY
     Route: 048

REACTIONS (7)
  - COMA [None]
  - CONDITION AGGRAVATED [None]
  - DEATH [None]
  - MEMORY IMPAIRMENT [None]
  - METASTASES TO LUNG [None]
  - OVARIAN CANCER [None]
  - UTERINE CANCER [None]
